FAERS Safety Report 9678146 (Version 1)
Quarter: 2013Q4

REPORT INFORMATION
  Report Type: Spontaneous
  Country: CH (occurrence: CH)
  Receive Date: 20131108
  Receipt Date: 20131108
  Transmission Date: 20140711
  Serious: Yes (Death)
  Sender: FDA-Public Use
  Company Number: CH-SA-2013SA111799

PATIENT
  Age: 54 Year
  Sex: Female

DRUGS (5)
  1. STILNOX [Suspect]
     Indication: PRODUCT USED FOR UNKNOWN INDICATION
     Route: 065
     Dates: start: 20130904, end: 20130904
  2. STILNOX [Suspect]
     Indication: PRODUCT USED FOR UNKNOWN INDICATION
     Route: 065
  3. SEROQUEL [Suspect]
     Indication: PRODUCT USED FOR UNKNOWN INDICATION
     Route: 048
     Dates: start: 20130904, end: 20130904
  4. PHENPROCOUMON [Concomitant]
     Route: 048
  5. FLUMAZENIL [Concomitant]
     Route: 040
     Dates: start: 20130904, end: 20130904

REACTIONS (5)
  - Death [Fatal]
  - Intentional overdose [Unknown]
  - Electrocardiogram QT prolonged [Fatal]
  - Extrasystoles [Fatal]
  - Ventricular fibrillation [Fatal]
